FAERS Safety Report 12171564 (Version 1)
Quarter: 2016Q1

REPORT INFORMATION
  Report Type: Report from Study
  Country: ES (occurrence: ES)
  Receive Date: 20160311
  Receipt Date: 20160311
  Transmission Date: 20160526
  Serious: Yes (Hospitalization, Other)
  Sender: FDA-Public Use
  Company Number: ES-PFIZER INC-2016141055

PATIENT
  Age: 63 Year
  Sex: Male

DRUGS (8)
  1. ALDACTONE [Suspect]
     Active Substance: SPIRONOLACTONE
     Indication: HEPATIC CIRRHOSIS
     Dosage: 50 MG, 1X/DAY (ALDACTONE 100 MG 1/2-0-0)
     Route: 048
     Dates: start: 2014, end: 20150722
  2. LEVEMIR [Concomitant]
     Active Substance: INSULIN DETEMIR
     Indication: TYPE 2 DIABETES MELLITUS
     Dosage: 30-0-18 (MODIFYING AS PER GLYCEMIA)
  3. SUMIAL [Concomitant]
     Active Substance: PROPRANOLOL HYDROCHLORIDE
     Dosage: 10 MG, 3X/DAY
  4. EMPORTAL [Concomitant]
     Dosage: 0-0-2
  5. COLCHIMAX /00728901/ [Concomitant]
     Active Substance: COLCHICINE\DICYCLOMINE HYDROCHLORIDE
     Dosage: IF NEEDED
  6. FERROGRADUMET [Concomitant]
     Dosage: 1-0-0
  7. OMEPRAZOLE. [Concomitant]
     Active Substance: OMEPRAZOLE
     Dosage: 20 MG, 1X/DAY (1-0-0)
  8. SEGURIL [Suspect]
     Active Substance: FUROSEMIDE
     Indication: HEPATIC CIRRHOSIS
     Dosage: 40 MG, 2X/DAY (INCREASE OF DOSE) 2-0-0
     Route: 048
     Dates: start: 20150701, end: 20150722

REACTIONS (4)
  - Constipation [Unknown]
  - Urinary tract infection [Unknown]
  - Hepatic encephalopathy [Recovered/Resolved]
  - Hepatic encephalopathy [Unknown]

NARRATIVE: CASE EVENT DATE: 201506
